FAERS Safety Report 4455567-4 (Version None)
Quarter: 2004Q3

REPORT INFORMATION
  Report Type: 
  Country: None (occurrence: None)
  Receive Date: 20040917
  Receipt Date: 20040827
  Transmission Date: 20050211
  Serious: Yes (Other)
  Sender: FDA-Public Use
  Company Number: US_0408105110

PATIENT
  Age: 25 Year
  Sex: Male
  Weight: 132 kg

DRUGS (2)
  1. STRATTERA [Suspect]
     Dosage: 120 MG DAY
  2. LEXAPRO [Concomitant]

REACTIONS (2)
  - SUICIDAL IDEATION [None]
  - SUICIDE ATTEMPT [None]
